FAERS Safety Report 20626361 (Version 6)
Quarter: 2022Q3

REPORT INFORMATION
  Report Type: Report from Study
  Country: US (occurrence: US)
  Receive Date: 20220323
  Receipt Date: 20220725
  Transmission Date: 20221027
  Serious: Yes (Other)
  Sender: FDA-Public Use
  Company Number: US-NOVARTISTESTPH-NVSC2022US066092

PATIENT
  Age: 75 Year
  Sex: Male

DRUGS (1)
  1. ENTRESTO [Suspect]
     Active Substance: SACUBITRIL\VALSARTAN
     Indication: Product used for unknown indication
     Dosage: 0.5 DOSAGE FORM, BID (1/2 TABLET IN MORNING, 1/2 TABLET IN EVENING)
     Route: 048
     Dates: start: 202112

REACTIONS (8)
  - Prostate cancer recurrent [Unknown]
  - Seasonal allergy [Unknown]
  - Dyspnoea [Unknown]
  - Hypotension [Recovering/Resolving]
  - COVID-19 [Unknown]
  - Asthenia [Unknown]
  - Wrong technique in product usage process [Unknown]
  - Prescribed underdose [Unknown]

NARRATIVE: CASE EVENT DATE: 20220714
